FAERS Safety Report 13437398 (Version 1)
Quarter: 2017Q2

REPORT INFORMATION
  Report Type: Spontaneous
  Country: US (occurrence: US)
  Receive Date: 20170412
  Receipt Date: 20170412
  Transmission Date: 20170830
  Serious: No
  Sender: FDA-Public Use
  Company Number: US-SA-2016SA201773

PATIENT
  Age: 71 Year
  Sex: Female

DRUGS (1)
  1. ALLEGRA ALLERGY [Suspect]
     Active Substance: FEXOFENADINE HYDROCHLORIDE
     Dosage: IN THE?MORNING
     Route: 048

REACTIONS (4)
  - Extra dose administered [Unknown]
  - Gait disturbance [Not Recovered/Not Resolved]
  - Limb deformity [Not Recovered/Not Resolved]
  - Muscle spasms [Not Recovered/Not Resolved]
